FAERS Safety Report 10210066 (Version 2)
Quarter: 2014Q2

REPORT INFORMATION
  Report Type: Spontaneous
  Country: US (occurrence: US)
  Receive Date: 20140602
  Receipt Date: 20140602
  Transmission Date: 20141212
  Serious: No
  Sender: FDA-Public Use
  Company Number: US-MYLANLABS-2014S1005203

PATIENT
  Sex: Female

DRUGS (4)
  1. KETOROLAC TROMETHAMINE TABLETS, USP [Suspect]
     Indication: PAIN
     Route: 048
     Dates: start: 201312, end: 201312
  2. DIAZEPAM TABLETS, USP [Suspect]
     Route: 048
     Dates: start: 201312, end: 201312
  3. HYDROXYCHLOROQUINE SULFATE TABLETS, USP [Suspect]
     Indication: LYME DISEASE
     Route: 048
     Dates: start: 201312, end: 201312
  4. HYDROXYCHLOROQUINE SULFATE TABLETS, USP [Suspect]
     Indication: OFF LABEL USE
     Route: 048
     Dates: start: 201312, end: 201312

REACTIONS (5)
  - Influenza like illness [Not Recovered/Not Resolved]
  - Rash generalised [Not Recovered/Not Resolved]
  - Pain in extremity [Not Recovered/Not Resolved]
  - Reaction to drug excipients [Not Recovered/Not Resolved]
  - Off label use [None]
